FAERS Safety Report 4445784-1 (Version None)
Quarter: 2004Q3

REPORT INFORMATION
  Report Type: 
  Country: None (occurrence: None)
  Receive Date: 20040910
  Receipt Date: 20040816
  Transmission Date: 20050211
  Serious: Yes (Hospitalization)
  Sender: FDA-Public Use
  Company Number: 200416176US

PATIENT
  Age: 42 Year
  Sex: Female

DRUGS (7)
  1. KETEK [Suspect]
     Indication: CHRONIC SINUSITIS
  2. ORAL CONTRACEPTIVE NOS [Concomitant]
     Dosage: DOSE: UNK
  3. WELLBUTRIN [Concomitant]
     Dosage: DOSE: UNK
  4. TRAZODONE HCL [Concomitant]
     Dosage: DOSE: UNK
  5. ALDACTONE [Concomitant]
     Dosage: DOSE: UNK
  6. FLOMAX [Concomitant]
     Dosage: DOSE: UNK
  7. ALLEGRA [Concomitant]
     Dosage: DOSE: UNK

REACTIONS (3)
  - BLOOD PRESSURE INCREASED [None]
  - CHEST DISCOMFORT [None]
  - TACHYCARDIA [None]
